FAERS Safety Report 21497786 (Version 1)
Quarter: 2022Q4

REPORT INFORMATION
  Report Type: Spontaneous
  Country: US (occurrence: US)
  Receive Date: 20221024
  Receipt Date: 20221024
  Transmission Date: 20230113
  Serious: No
  Sender: FDA-Public Use
  Company Number: US-NOVARTISTESTPH-NVSC2022US238836

PATIENT
  Sex: Female

DRUGS (4)
  1. RECLAST [Suspect]
     Active Substance: ZOLEDRONIC ACID
     Indication: Product used for unknown indication
     Dosage: UNK, ONCE/SINGLE (INFUSION)
     Route: 065
     Dates: start: 20220408
  2. RECLAST [Suspect]
     Active Substance: ZOLEDRONIC ACID
     Dosage: UNK
     Route: 065
     Dates: start: 20220804
  3. REMICADE [Concomitant]
     Active Substance: INFLIXIMAB
     Indication: Arthritis
     Dosage: UNK (EVERY 9 WEEKS)
     Route: 065
  4. METHOTREXATE [Concomitant]
     Active Substance: METHOTREXATE
     Indication: Arthritis
     Dosage: UNK, QW
     Route: 065

REACTIONS (4)
  - Adverse event [Unknown]
  - Discomfort [Unknown]
  - Muscle spasms [Unknown]
  - Pain [Unknown]
